FAERS Safety Report 11658208 (Version 1)
Quarter: 2015Q4

REPORT INFORMATION
  Report Type: Spontaneous
  Country: US (occurrence: US)
  Receive Date: 20151025
  Receipt Date: 20151025
  Transmission Date: 20160304
  Serious: Yes (Death, Hospitalization, Other)
  Sender: FDA-Public Use
  Company Number: US-AMGEN-USASP2015110876

PATIENT
  Age: 75 Year
  Sex: Female
  Weight: 64 kg

DRUGS (19)
  1. IMBRUVICA [Suspect]
     Active Substance: IBRUTINIB
     Indication: NON-HODGKIN^S LYMPHOMA
     Dosage: 420 MG, QD
     Route: 048
     Dates: start: 20150818, end: 20150924
  2. NEUPOGEN [Suspect]
     Active Substance: FILGRASTIM
     Indication: PLATELET COUNT DECREASED
     Dosage: UNK
     Route: 065
  3. SIMVASTATIN. [Concomitant]
     Active Substance: SIMVASTATIN
     Dosage: 10 MG, QD
     Route: 048
  4. VALGANCICLOVIR [Concomitant]
     Active Substance: VALGANCICLOVIR
     Dosage: 900 MG, QD
     Route: 048
  5. IPRATROPIUM BROMIDE. [Concomitant]
     Active Substance: IPRATROPIUM BROMIDE
     Dosage: 1 GTT, QD
     Route: 045
  6. PAROXETINE [Concomitant]
     Active Substance: PAROXETINE\PAROXETINE HYDROCHLORIDE
     Dosage: 20 MG, QD
     Route: 048
     Dates: start: 1999
  7. FLUTICASONE [Concomitant]
     Active Substance: FLUTICASONE\FLUTICASONE PROPIONATE
     Dosage: 1 GTT, QD
     Route: 045
  8. OXYCODONE [Concomitant]
     Active Substance: OXYCODONE
     Dosage: UNK
  9. FLONASE                            /00908302/ [Concomitant]
     Active Substance: MOMETASONE FUROATE
     Dosage: UNK
  10. ALLOPURINOL. [Concomitant]
     Active Substance: ALLOPURINOL
     Dosage: 300 MG, QD
     Route: 048
  11. ATIVAN [Concomitant]
     Active Substance: LORAZEPAM
     Dosage: UNK
  12. BACTRIM [Concomitant]
     Active Substance: SULFAMETHOXAZOLE\TRIMETHOPRIM
     Dosage: UNK
  13. DECADRON [Concomitant]
     Active Substance: DEXAMETHASONE
     Dosage: UNK
  14. LOVENOX [Concomitant]
     Active Substance: ENOXAPARIN SODIUM
     Dosage: UNK
  15. POTASSIUM CL [Concomitant]
     Active Substance: POTASSIUM CHLORIDE
     Dosage: 40 MEQ, BID
     Dates: start: 20150813
  16. PROCRIT [Suspect]
     Active Substance: ERYTHROPOIETIN
     Indication: WHITE BLOOD CELL COUNT DECREASED
     Dosage: UNK
     Route: 065
  17. COMPAZINE [Concomitant]
     Active Substance: PROCHLORPERAZINE MALEATE
     Dosage: UNK
  18. KYTRIL [Concomitant]
     Active Substance: GRANISETRON HYDROCHLORIDE
     Dosage: UNK
  19. VITAMIN D3 [Concomitant]
     Active Substance: CHOLECALCIFEROL
     Dosage: 1000 IU, BID

REACTIONS (7)
  - Asthenia [Unknown]
  - Haemoglobin decreased [Unknown]
  - White blood cell count increased [Unknown]
  - Non-Hodgkin^s lymphoma [Fatal]
  - Pyrexia [Recovered/Resolved]
  - Platelet count decreased [Unknown]
  - White blood cell count decreased [Not Recovered/Not Resolved]

NARRATIVE: CASE EVENT DATE: 2015
